FAERS Safety Report 6099792-8 (Version None)
Quarter: 2009Q1

REPORT INFORMATION
  Report Type: 
  Country: None (occurrence: None)
  Receive Date: 20090303
  Receipt Date: 20090217
  Transmission Date: 20090719
  Serious: Yes (Hospitalization)
  Sender: FDA-Public Use
  Company Number: PHHY2009MX05938

PATIENT
  Age: 59 Year
  Sex: Female

DRUGS (2)
  1. DIOVAN [Suspect]
     Indication: HYPERTENSION
     Dosage: 80 MG, PER DAY
     Route: 048
  2. GLIMETAL [Concomitant]
     Indication: DIABETES MELLITUS

REACTIONS (1)
  - SURGERY [None]
